FAERS Safety Report 13753381 (Version 5)
Quarter: 2019Q3

REPORT INFORMATION
  Report Type: Spontaneous
  Country: JP (occurrence: JP)
  Receive Date: 20170713
  Receipt Date: 20190922
  Transmission Date: 20191004
  Serious: Yes (Death, Life-Threatening, Hospitalization, Other)
  Sender: FDA-Public Use
  Company Number: JP-CELGENEUS-JPN-20170605626

PATIENT
  Age: 86 Year
  Sex: Male
  Weight: 43.5 kg

DRUGS (23)
  1. PREDONINE [Suspect]
     Active Substance: PREDNISOLONE
     Dosage: 20 MILLIGRAM
     Route: 065
     Dates: start: 20170620, end: 20170630
  2. VICCLOX [Concomitant]
     Active Substance: ACYCLOVIR SODIUM
     Indication: INFECTION PROPHYLAXIS
     Dosage: 100 MILLIGRAM
     Route: 048
     Dates: start: 20170222, end: 20170601
  3. RED BLOOD CELLS [Concomitant]
     Active Substance: HUMAN RED BLOOD CELL
     Indication: PRODUCT USED FOR UNKNOWN INDICATION
     Dosage: 2 UNITS
     Route: 065
     Dates: start: 20170320
  4. REVLIMID [Suspect]
     Active Substance: LENALIDOMIDE
     Dosage: 5 MILLIGRAM
     Route: 048
     Dates: start: 20170512, end: 20170522
  5. ROCEPHIN [Suspect]
     Active Substance: CEFTRIAXONE SODIUM
     Indication: URINARY TRACT INFECTION
     Dosage: 1 GRAM
     Route: 041
     Dates: start: 20170513, end: 20170516
  6. BORTEZOMIB. [Suspect]
     Active Substance: BORTEZOMIB
     Indication: PLASMA CELL MYELOMA
     Route: 065
     Dates: start: 20170118, end: 20170329
  7. DEXAMETHASONE IV [Suspect]
     Active Substance: DEXAMETHASONE
     Indication: PLASMA CELL MYELOMA
     Route: 041
     Dates: start: 20170118, end: 20170329
  8. METHYLPREDNISOLONE. [Suspect]
     Active Substance: METHYLPREDNISOLONE
     Indication: TOXIC EPIDERMAL NECROLYSIS
     Dosage: 1 GRAM
     Route: 065
     Dates: start: 20170529, end: 20170531
  9. PREDONINE [Suspect]
     Active Substance: PREDNISOLONE
     Dosage: 35 MILLIGRAM
     Route: 065
     Dates: start: 20170615
  10. ISCOTIN [Concomitant]
     Active Substance: ISONIAZID
     Indication: ANTIBIOTIC PROPHYLAXIS
     Dosage: 300 MILLIGRAM
     Route: 048
     Dates: start: 20170130, end: 20170517
  11. NEXIUM [Concomitant]
     Active Substance: ESOMEPRAZOLE MAGNESIUM
     Indication: PROPHYLAXIS AGAINST GASTROINTESTINAL ULCER
     Dosage: 20 MILLIGRAM
     Route: 048
     Dates: start: 20170117, end: 20170601
  12. BAKTAR [Suspect]
     Active Substance: SULFAMETHOXAZOLE\TRIMETHOPRIM
     Indication: INFECTION PROPHYLAXIS
     Dosage: .5 DOSAGE FORMS
     Route: 048
     Dates: start: 20170222, end: 20170528
  13. PREDONINE [Suspect]
     Active Substance: PREDNISOLONE
     Indication: TOXIC EPIDERMAL NECROLYSIS
     Dosage: 50 MILLIGRAM
     Route: 065
     Dates: start: 201706
  14. RED BLOOD CELLS [Concomitant]
     Active Substance: HUMAN RED BLOOD CELL
     Dosage: 2 UNITS
     Route: 065
     Dates: start: 20170419
  15. DIFLUCAN [Concomitant]
     Active Substance: FLUCONAZOLE
     Indication: INFECTION PROPHYLAXIS
     Dosage: 100 MILLIGRAM
     Route: 048
     Dates: start: 20170222, end: 20170601
  16. REVLIMID [Suspect]
     Active Substance: LENALIDOMIDE
     Indication: PLASMA CELL MYELOMA
     Dosage: 15 MILLIGRAM
     Route: 048
     Dates: start: 20170502, end: 20170511
  17. LENADEX [Suspect]
     Active Substance: DEXAMETHASONE ACETATE
     Indication: PLASMA CELL MYELOMA
     Route: 048
     Dates: start: 20170118
  18. LENADEX [Suspect]
     Active Substance: DEXAMETHASONE ACETATE
     Dosage: 12 MILLIGRAM
     Route: 048
     Dates: start: 20170502, end: 20170523
  19. FLORINEF ACETATE [Suspect]
     Active Substance: FLUDROCORTISONE ACETATE
     Indication: ORTHOSTATIC HYPOTENSION
     Dosage: .2 MILLIGRAM
     Route: 048
     Dates: start: 20170517, end: 20170529
  20. FEBURIC [Concomitant]
     Active Substance: FEBUXOSTAT
     Indication: HYPERURICAEMIA
     Dosage: 10 MILLIGRAM
     Route: 048
     Dates: start: 20170117, end: 20170529
  21. LENADEX [Suspect]
     Active Substance: DEXAMETHASONE ACETATE
     Indication: PLASMA CELL MYELOMA
     Route: 048
     Dates: start: 20170207
  22. ROCEPHIN [Suspect]
     Active Substance: CEFTRIAXONE SODIUM
     Indication: SEPSIS
  23. PYDOXAL [Concomitant]
     Active Substance: PYRIDOXAL
     Indication: PROPHYLAXIS
     Dosage: 30 MILLIGRAM
     Route: 048
     Dates: start: 20170130, end: 20170529

REACTIONS (16)
  - Plasma cell myeloma [Fatal]
  - Bone marrow failure [Recovered/Resolved]
  - Delirium [Not Recovered/Not Resolved]
  - Somnolence [Unknown]
  - Decreased appetite [Unknown]
  - Renal impairment [Unknown]
  - Cardiac failure [Fatal]
  - Atrial fibrillation [Not Recovered/Not Resolved]
  - Hypothyroidism [Not Recovered/Not Resolved]
  - Dermatophytosis of nail [Unknown]
  - Toxic epidermal necrolysis [Fatal]
  - Herpes zoster [Recovered/Resolved]
  - Neuropathy peripheral [Unknown]
  - Pneumonia [Fatal]
  - Hypokalaemia [Unknown]
  - Orthostatic hypotension [Not Recovered/Not Resolved]

NARRATIVE: CASE EVENT DATE: 2017
